FAERS Safety Report 21608379 (Version 5)
Quarter: 2025Q1

REPORT INFORMATION
  Report Type: Spontaneous
  Country: DE (occurrence: DE)
  Receive Date: 20221117
  Receipt Date: 20250228
  Transmission Date: 20250409
  Serious: Yes (Hospitalization)
  Sender: MYLAN
  Company Number: DE-MYLANLABS-2022M1126646

PATIENT
  Age: 49 Year
  Sex: Female
  Weight: 69 kg

DRUGS (20)
  1. LYRICA [Suspect]
     Active Substance: PREGABALIN
     Indication: Product used for unknown indication
     Dosage: 250 MILLIGRAM, QD (100MG IN THE MORNING AND 150MG IN THE EVENING)
  2. LYRICA [Suspect]
     Active Substance: PREGABALIN
     Dosage: 25 MILLIGRAM, BID (25MG IN THE MORNING AND EVENING)
  3. ESCITALOPRAM [Suspect]
     Active Substance: ESCITALOPRAM OXALATE
     Indication: Product used for unknown indication
  4. ESCITALOPRAM [Suspect]
     Active Substance: ESCITALOPRAM OXALATE
     Indication: Product used for unknown indication
     Dosage: 20 MILLIGRAM, QD
  5. MIRTAZAPINE [Suspect]
     Active Substance: MIRTAZAPINE
     Indication: Product used for unknown indication
     Dosage: 30 MILLIGRAM, QD
  6. TERIFLUNOMIDE [Suspect]
     Active Substance: TERIFLUNOMIDE
     Indication: Product used for unknown indication
     Dosage: 14 GRAM, QD
  7. VIMPAT [Suspect]
     Active Substance: LACOSAMIDE
     Indication: Product used for unknown indication
  8. CANNABIS SATIVA SUBSP. INDICA TOP [Concomitant]
     Active Substance: CANNABIS SATIVA SUBSP. INDICA TOP
  9. CANNABIS SATIVA SUBSP. INDICA TOP [Concomitant]
     Active Substance: CANNABIS SATIVA SUBSP. INDICA TOP
     Dosage: 5 GTT DROPS, BID (MORNING AND EVENING)
  10. CANNABIS SATIVA SUBSP. INDICA TOP [Concomitant]
     Active Substance: CANNABIS SATIVA SUBSP. INDICA TOP
  11. CANNABIS SATIVA SUBSP. INDICA TOP [Concomitant]
     Active Substance: CANNABIS SATIVA SUBSP. INDICA TOP
  12. VALPROIC ACID [Concomitant]
     Active Substance: VALPROIC ACID
     Indication: Epilepsy
     Dosage: 500 MILLIGRAM, BID (500 MG IN THE MORNING AND EVENING)
  13. Tavor [Concomitant]
     Indication: Epilepsy
  14. ENALAPRIL [Concomitant]
     Active Substance: ENALAPRIL
     Indication: Blood pressure abnormal
  15. ATORVASTATIN [Concomitant]
     Active Substance: ATORVASTATIN
     Indication: Blood pressure abnormal
     Dosage: 10 MILLIGRAM, QD (AT NIGHT DAILY)
  16. ATORVASTATIN [Concomitant]
     Active Substance: ATORVASTATIN
     Indication: Blood cholesterol abnormal
  17. ASPIRIN [Concomitant]
     Active Substance: ASPIRIN
     Dosage: UNK, QW (EVERY SUNDAY)
  18. ASPIRIN [Concomitant]
     Active Substance: ASPIRIN
     Dosage: UNK, QD
  19. VITAMIN D [Concomitant]
     Active Substance: VITAMIN D NOS
     Dosage: UNK, QW (EVERY SUNDAY)
  20. VIMPAT [Concomitant]
     Active Substance: LACOSAMIDE
     Indication: Epilepsy
     Dosage: 0.5 DOSAGE FORM, QD (HALF IN THE MORNING)

REACTIONS (4)
  - Trichoglossia [Not Recovered/Not Resolved]
  - Skin discolouration [Unknown]
  - Dyspnoea [Unknown]
  - Pain in extremity [Unknown]
